FAERS Safety Report 18138141 (Version 1)
Quarter: 2020Q3

REPORT INFORMATION
  Report Type: Other
  Country: CN (occurrence: CN)
  Receive Date: 20200812
  Receipt Date: 20200812
  Transmission Date: 20201103
  Serious: Yes (Other)
  Sender: FDA-Public Use
  Company Number: CN-ROCHE-2655340

PATIENT
  Age: 54 Year

DRUGS (3)
  1. ATEZOLIZUMAB. [Suspect]
     Active Substance: ATEZOLIZUMAB
     Indication: INTENTIONAL PRODUCT USE ISSUE
     Dosage: 15MG/KG
     Route: 042
     Dates: start: 20200506, end: 20200621
  2. ETOPOSIDE. [Concomitant]
     Active Substance: ETOPOSIDE
  3. CARBOPLATIN. [Concomitant]
     Active Substance: CARBOPLATIN

REACTIONS (2)
  - Drug ineffective [Unknown]
  - Disease progression [Unknown]
